FAERS Safety Report 24428805 (Version 1)
Quarter: 2024Q4

REPORT INFORMATION
  Report Type: Spontaneous
  Country: US (occurrence: None)
  Receive Date: 20241011
  Receipt Date: 20241011
  Transmission Date: 20250114
  Serious: Yes (Other)
  Sender: Public
  Company Number: None

PATIENT
  Age: 73 Year
  Sex: Male
  Weight: 62.1 kg

DRUGS (5)
  1. ALFUZOSIN HYDROCHLORIDE [Suspect]
     Active Substance: ALFUZOSIN HYDROCHLORIDE
     Indication: Benign prostatic hyperplasia
     Dosage: OTHER QUANTITY : 1 CAPSULE(S);?FREQUENCY : AT BEDTIME;?
     Route: 048
     Dates: start: 20241005, end: 20241010
  2. daily vitamin [Concomitant]
  3. VITAMIN D3 [Concomitant]
     Active Substance: CHOLECALCIFEROL
  4. Iodine (sea kelp) [Concomitant]
  5. Ginkgo Biloba capsule [Concomitant]

REACTIONS (6)
  - Headache [None]
  - Sinus congestion [None]
  - Glossodynia [None]
  - Oropharyngeal pain [None]
  - Dysphagia [None]
  - Drug hypersensitivity [None]

NARRATIVE: CASE EVENT DATE: 20241010
